FAERS Safety Report 7027677-9 (Version None)
Quarter: 2010Q4

REPORT INFORMATION
  Report Type: 
  Country: None (occurrence: None)
  Receive Date: 20101004
  Receipt Date: 20100927
  Transmission Date: 20110411
  Serious: Yes (Other)
  Sender: FDA-Public Use
  Company Number: TR-AMGEN-QUU441929

PATIENT
  Age: 27 Year
  Sex: Male
  Weight: 56 kg

DRUGS (1)
  1. ENBREL [Suspect]
     Indication: ANKYLOSING SPONDYLITIS
     Dosage: DOSE NOT PROVIDED
     Route: 058
     Dates: start: 20100714, end: 20100924

REACTIONS (2)
  - HAEMATURIA [None]
  - THROMBOCYTOPENIA [None]
